FAERS Safety Report 15953826 (Version 2)
Quarter: 2019Q1

REPORT INFORMATION
  Report Type: Spontaneous
  Country: DE (occurrence: DE)
  Receive Date: 20190213
  Receipt Date: 20190221
  Transmission Date: 20190417
  Serious: Yes (Hospitalization, Other)
  Sender: FDA-Public Use
  Company Number: DE-AUROBINDO-AUR-APL-2019-005991

PATIENT

DRUGS (8)
  1. ATORVASTATIN [Concomitant]
     Active Substance: ATORVASTATIN
     Indication: PRODUCT USED FOR UNKNOWN INDICATION
     Dosage: UNK, DAILY
  2. IBUPROFEN. [Concomitant]
     Active Substance: IBUPROFEN
     Indication: PRODUCT USED FOR UNKNOWN INDICATION
     Dosage: UNK, DAILY
  3. PANTOZOL [Concomitant]
     Active Substance: PANTOPRAZOLE SODIUM
     Indication: PRODUCT USED FOR UNKNOWN INDICATION
     Dosage: UNK, DAILY
  4. CLEXANE [Concomitant]
     Active Substance: ENOXAPARIN SODIUM
     Indication: PRODUCT USED FOR UNKNOWN INDICATION
  5. VALSARTAN-ACTAVIS COMP 80 MG/12.5 MG FILM COATED TABLETS [Suspect]
     Active Substance: HYDROCHLOROTHIAZIDE\VALSARTAN
     Indication: HYPERTENSION
     Dosage: 80/12.5 MG DAILY
     Route: 048
     Dates: start: 20131016, end: 20140616
  6. SPIRONOLACTONE. [Concomitant]
     Active Substance: SPIRONOLACTONE
     Indication: PRODUCT USED FOR UNKNOWN INDICATION
     Dosage: UNK, DAILY
  7. VALSARTAN + HCTZ [Suspect]
     Active Substance: HYDROCHLOROTHIAZIDE\VALSARTAN
     Indication: HYPERTENSION
     Dosage: UNK
     Route: 065
     Dates: end: 201807
  8. VALSARTAN HEXAL [Suspect]
     Active Substance: VALSARTAN
     Indication: PRODUCT USED FOR UNKNOWN INDICATION
     Dosage: 1 UNK, ONCE A DAY
     Route: 065
     Dates: start: 201211

REACTIONS (21)
  - Decreased immune responsiveness [Not Recovered/Not Resolved]
  - Scar pain [Not Recovered/Not Resolved]
  - Chills [Recovering/Resolving]
  - Night sweats [Unknown]
  - Gastrointestinal disorder [Not Recovered/Not Resolved]
  - Dyspnoea [Not Recovered/Not Resolved]
  - Liver function test increased [Unknown]
  - Herpes virus infection [Unknown]
  - Nausea [Recovered/Resolved with Sequelae]
  - Ascites [Recovering/Resolving]
  - Abdominal pain upper [Recovered/Resolved with Sequelae]
  - Muscle spasms [Not Recovered/Not Resolved]
  - Cholestasis [Unknown]
  - Postoperative delirium [Recovered/Resolved]
  - Pancreatitis [Unknown]
  - Cholangiocarcinoma [Recovered/Resolved with Sequelae]
  - Hepatic cancer [Unknown]
  - Peritonitis [Unknown]
  - Hyperhidrosis [Not Recovered/Not Resolved]
  - Pyrexia [Unknown]
  - Nasopharyngitis [Unknown]

NARRATIVE: CASE EVENT DATE: 2016
